FAERS Safety Report 10066839 (Version 1)
Quarter: 2014Q2

REPORT INFORMATION
  Report Type: Report from Study
  Country: PL (occurrence: PL)
  Receive Date: 20140408
  Receipt Date: 20140408
  Transmission Date: 20141212
  Serious: Yes (Life-Threatening, Hospitalization)
  Sender: FDA-Public Use
  Company Number: PL-MYLANLABS-2014S1007533

PATIENT
  Age: 16 Year
  Sex: Female
  Weight: 48 kg

DRUGS (2)
  1. METHOTREXATE [Suspect]
     Indication: OSTEOSARCOMA
     Dosage: 12 G/M2 (18.3 G)
     Route: 065
  2. METHOTREXATE [Suspect]
     Indication: OFF LABEL USE
     Dosage: 12 G/M2 (18.3 G)
     Route: 065

REACTIONS (4)
  - Multi-organ failure [Recovering/Resolving]
  - Toxicity to various agents [Recovering/Resolving]
  - Oedema [Unknown]
  - Vomiting [Unknown]
